FAERS Safety Report 6695761 (Version 11)
Quarter: 2014Q2

REPORT INFORMATION
  Report Type: Spontaneous
  Country: US (occurrence: US)
  Receive Date: 20080710
  Receipt Date: 20140508
  Transmission Date: 20141212
  Serious: Yes (Hospitalization, Other)
  Sender: FDA-Public Use
  Company Number: US-ROCHE-555919

PATIENT
  Age: 20 Year
  Sex: Female
  Weight: 59 kg

DRUGS (13)
  1. ACCUTANE [Suspect]
     Indication: ACNE
     Dosage: THE PATIENT WAS DISPENSED ACCUTANE 40 MG ON 11 MAY 2004.
     Route: 048
  2. ACCUTANE [Suspect]
     Dosage: SHE WAS TAKING ACCUTANE EVERY MONDAY, WEDNESDAY, AND FRIDAY
     Route: 048
  3. ACCUTANE [Suspect]
     Route: 048
  4. ACCUTANE [Suspect]
     Dosage: SHE WAS TAKING ACCUTANE EVERY MONDAY, WEDNESDAY, AND FRIDAY
     Route: 048
  5. ACCUTANE [Suspect]
     Route: 048
  6. ACCUTANE [Suspect]
     Dosage: SHE WAS TAKING ACCUTANE ONE EVERY OTHER MONTH
     Route: 048
  7. ACCUTANE [Suspect]
     Route: 048
  8. ACCUTANE [Suspect]
     Dosage: SHE WAS TAKING ACCUTANE ONE WEEK ON AND ONE WEEK OFF
     Route: 048
  9. ACCUTANE [Suspect]
     Dosage: SHE WAS PRESCRIBED ACCUTANE 40 MG ON 18 JULY 2006
     Route: 048
  10. ACCUTANE [Suspect]
     Route: 048
  11. CLARAVIS [Suspect]
     Indication: ACNE
     Dosage: TH E PATIENT WAS DISPENSED CLARAVIS 40 MG CAPSULE ON 18 AUGUST 2006
     Route: 048
     Dates: start: 20060818, end: 200609
  12. SOTRET [Suspect]
     Indication: ACNE
     Dosage: THE PATIENT WAS DISPENSED SOTRET 40 MG CAPSULE ON 20 SEPETEMBER 2006.
     Route: 048
     Dates: start: 20060920, end: 20061002
  13. TYLENOL [Concomitant]
     Route: 065

REACTIONS (24)
  - Crohn^s disease [Unknown]
  - Aneurysmal bone cyst [Recovered/Resolved with Sequelae]
  - Inflammatory bowel disease [Unknown]
  - Enteritis [Unknown]
  - Colitis [Unknown]
  - Small intestinal obstruction [Unknown]
  - Depression [Unknown]
  - Dry skin [Unknown]
  - Diarrhoea [Unknown]
  - Gastroenteritis [Recovering/Resolving]
  - Facet joint syndrome [Unknown]
  - Dermatitis [Unknown]
  - Dry eye [Unknown]
  - Lip dry [Unknown]
  - Arthralgia [Recovered/Resolved]
  - Myalgia [Recovered/Resolved]
  - Fatigue [Recovered/Resolved]
  - Exposure to body fluid [Unknown]
  - Pneumatosis intestinalis [Recovering/Resolving]
  - Otitis media [Unknown]
  - Neurological symptom [Unknown]
  - Chest pain [Recovering/Resolving]
  - Upper respiratory tract infection [Unknown]
  - Irritable bowel syndrome [Unknown]
